FAERS Safety Report 21108505 (Version 1)
Quarter: 2022Q3

REPORT INFORMATION
  Report Type: Spontaneous
  Country: CN (occurrence: CN)
  Receive Date: 20220721
  Receipt Date: 20220721
  Transmission Date: 20221027
  Serious: Yes (Hospitalization, Other)
  Sender: FDA-Public Use
  Company Number: None

PATIENT
  Age: 38 Year
  Sex: Female
  Weight: 66 kg

DRUGS (8)
  1. CYCLOPHOSPHAMIDE [Suspect]
     Active Substance: CYCLOPHOSPHAMIDE
     Indication: Breast cancer female
     Dosage: UNK, CYCLOPHOSPHAMIDE DILUTED WITH DILUENT 0.9% SODIUM CHLORIDE INJECTION, 1ST CYCLE OF CHEMOTHERAPY
     Route: 041
  2. CYCLOPHOSPHAMIDE [Suspect]
     Active Substance: CYCLOPHOSPHAMIDE
     Dosage: 1000 MG, ONCE DAILY, CYCLOPHOSPHAMIDE (1000MG) DILUTED WITH DILUENT 0.9% SODIUM CHLORIDE INJECTION
     Route: 041
     Dates: start: 20220701, end: 20220701
  3. SODIUM CHLORIDE [Suspect]
     Active Substance: SODIUM CHLORIDE
     Indication: Medication dilution
     Dosage: 100 ML, QD, CYCLOPHOSPHAMIDE (1000MG) DILUTED WITH DILUENT 0.9% SODIUM CHLORIDE INJECTION
     Route: 041
     Dates: start: 20220701, end: 20220701
  4. SODIUM CHLORIDE [Suspect]
     Active Substance: SODIUM CHLORIDE
     Dosage: UNK 0.9% SODIUM CHLORIDE INJECTION L + CYCLOPHOSPHAMIDE FOR INJECTION, 1ST HEMOTHERAPY
     Route: 041
  5. DEXTROSE MONOHYDRATE [Suspect]
     Active Substance: DEXTROSE MONOHYDRATE
     Indication: Medication dilution
     Dosage: UNK, PIRARUBICIN HYDROCHLORIDE DILUTED WITH DILUENT 5% GLUCOSE INJECTION, 1ST CYCLE OF CHEMOTHERAPY
     Route: 041
  6. DEXTROSE MONOHYDRATE [Suspect]
     Active Substance: DEXTROSE MONOHYDRATE
     Dosage: 100 ML, QD, PIRARUBICIN HYDROCHLORIDE (100 MG) DILUTED WITH DILUENT 5% GLUCOSE INJECTION (100ML), 2N
     Route: 041
     Dates: start: 20220701, end: 20220701
  7. PIRARUBICIN HYDROCHLORIDE [Suspect]
     Active Substance: PIRARUBICIN HYDROCHLORIDE
     Indication: Breast cancer female
     Dosage: UNK, QD, PIRARUBICIN HYDROCHLORIDE DILUTED WITH DILUENT 5% GLUCOSE INJECTION, 1ST CYCLE OF CHEMOTHER
     Route: 041
  8. PIRARUBICIN HYDROCHLORIDE [Suspect]
     Active Substance: PIRARUBICIN HYDROCHLORIDE
     Dosage: 100 MG, ONCE DAILY, PIRARUBICIN HYDROCHLORIDE (100 MG) DILUTED WITH DILUENT 5% GLUCOSE INJECTION (10
     Route: 041
     Dates: start: 20220701, end: 20220701

REACTIONS (1)
  - Myelosuppression [Recovered/Resolved]

NARRATIVE: CASE EVENT DATE: 20220710
